FAERS Safety Report 11009358 (Version 1)
Quarter: 2015Q2

REPORT INFORMATION
  Report Type: Spontaneous
  Country: US (occurrence: None)
  Receive Date: 20150409
  Receipt Date: 20150409
  Transmission Date: 20150821
  Serious: Yes (Disabling)
  Sender: FDA-Public Use
  Company Number: None

PATIENT
  Age: 44 Year
  Sex: Female
  Weight: 56.7 kg

DRUGS (8)
  1. PERCOCET [Concomitant]
     Active Substance: ACETAMINOPHEN\OXYCODONE HYDROCHLORIDE
  2. SUMATROPIN [Concomitant]
  3. CANASA [Concomitant]
     Active Substance: MESALAMINE
  4. SPIRONOLACTONE. [Concomitant]
     Active Substance: SPIRONOLACTONE
  5. ZOLPIDEM [Concomitant]
     Active Substance: ZOLPIDEM\ZOLPIDEM TARTRATE
  6. LIALDA [Concomitant]
     Active Substance: MESALAMINE
  7. ABSORICA [Suspect]
     Active Substance: ISOTRETINOIN
     Indication: ACNE CYSTIC
     Dosage: TAKEN BY MOUTH, 1 PILL
  8. PREDN ISONE [Concomitant]

REACTIONS (5)
  - Arthralgia [None]
  - Alopecia [None]
  - Colitis ulcerative [None]
  - Rectal haemorrhage [None]
  - Myalgia [None]

NARRATIVE: CASE EVENT DATE: 20150408
